FAERS Safety Report 17104876 (Version 1)
Quarter: 2019Q4

REPORT INFORMATION
  Report Type: Spontaneous
  Country: US (occurrence: US)
  Receive Date: 20191202
  Receipt Date: 20191202
  Transmission Date: 20200122
  Serious: Yes (Life-Threatening, Hospitalization, Other)
  Sender: FDA-Public Use
  Company Number: None

PATIENT
  Age: 66 Year
  Sex: Female
  Weight: 54.7 kg

DRUGS (9)
  1. CELEBREX [Suspect]
     Active Substance: CELECOXIB
  2. CALCITONIN [Suspect]
     Active Substance: CALCITONIN
  3. PREDNISONE. [Suspect]
     Active Substance: PREDNISONE
     Dates: start: 20191115
  4. CYCLOSPORINE 100 MG [Suspect]
     Active Substance: CYCLOSPORINE
  5. CYCLOBENZAPRINE 10 MG [Suspect]
     Active Substance: CYCLOBENZAPRINE
  6. HUMIRA [Suspect]
     Active Substance: ADALIMUMAB
     Indication: RHEUMATOID ARTHRITIS
     Dosage: EVERY TWO WEEK
     Route: 058
  7. NORCO [Suspect]
     Active Substance: ACETAMINOPHEN\HYDROCODONE BITARTRATE
  8. VOLTAREN [Suspect]
     Active Substance: DICLOFENAC SODIUM
  9. TRAMADOL HYDROCHLORIDE. [Suspect]
     Active Substance: TRAMADOL HYDROCHLORIDE

REACTIONS (3)
  - Respiratory failure [None]
  - Pneumonia [None]
  - Pneumonitis [None]

NARRATIVE: CASE EVENT DATE: 20191109
